FAERS Safety Report 17207639 (Version 1)
Quarter: 2019Q4

REPORT INFORMATION
  Report Type: Spontaneous
  Country: US (occurrence: US)
  Receive Date: 20191205
  Receipt Date: 20191205
  Transmission Date: 20200122
  Serious: No
  Sender: FDA-Public Use
  Company Number: None

PATIENT
  Sex: Female

DRUGS (2)
  1. VERZENIO [Suspect]
     Active Substance: ABEMACICLIB
     Indication: BREAST CANCER FEMALE
     Route: 048
     Dates: start: 20191025
  2. VERZENIO [Suspect]
     Active Substance: ABEMACICLIB
     Indication: WHITE BLOOD CELL COUNT DECREASED
     Route: 048
     Dates: start: 20191025

REACTIONS (1)
  - Platelet count decreased [None]
